FAERS Safety Report 17663282 (Version 1)
Quarter: 2020Q2

REPORT INFORMATION
  Report Type: Spontaneous
  Country: FR (occurrence: FR)
  Receive Date: 20200413
  Receipt Date: 20200413
  Transmission Date: 20200713
  Serious: Yes (Other)
  Sender: FDA-Public Use
  Company Number: FR-ADVANZ PHARMA-202004002844

PATIENT

DRUGS (3)
  1. HYDROXYCHLOROQUINE [Suspect]
     Active Substance: HYDROXYCHLOROQUINE
     Dosage: 1CP/DAY FOR 15
  2. CARDENSIEL [Concomitant]
     Active Substance: BISOPROLOL FUMARATE
     Dosage: UNK
  3. HYDROXYCHLOROQUINE [Suspect]
     Active Substance: HYDROXYCHLOROQUINE
     Indication: ARTHRITIS
     Dosage: 2CP/DAY, QD
     Route: 065

REACTIONS (7)
  - Femur fracture [Unknown]
  - Fall [Unknown]
  - Cardiac disorder [Unknown]
  - Hypoacusis [Unknown]
  - Product dose omission [Unknown]
  - Unevaluable event [Unknown]
  - Intentional product use issue [Unknown]
